FAERS Safety Report 9423678 (Version 2)
Quarter: 2013Q3

REPORT INFORMATION
  Report Type: Spontaneous
  Country: US (occurrence: US)
  Receive Date: 20130727
  Receipt Date: 20130920
  Transmission Date: 20140515
  Serious: Yes (Hospitalization, Other)
  Sender: FDA-Public Use
  Company Number: US-JNJFOC-20130715293

PATIENT
  Age: 74 Year
  Sex: Female

DRUGS (13)
  1. IBUPROFEN [Suspect]
     Indication: PRODUCT USED FOR UNKNOWN INDICATION
     Dosage: 1-2 TABLETS EVERY 4-6 HOURS AS NEEDED.
     Route: 048
  2. PHENAZOPYRIDINE [Suspect]
     Indication: MICTURITION URGENCY
     Route: 048
  3. PHENAZOPYRIDINE [Suspect]
     Indication: BLADDER PAIN
     Route: 048
  4. ENALAPRIL MALEATE W/HYDROCHLOROTIAZIDE [Suspect]
     Indication: PRODUCT USED FOR UNKNOWN INDICATION
     Dosage: 10/25 MG DAILY
     Route: 065
  5. ALBUTEROL SULFATE W/IPRATROPIUM BROMIDE [Concomitant]
     Indication: DYSPNOEA
     Route: 055
  6. FORMOTEROL [Concomitant]
     Dosage: 2G/2ML NEBULIZED TWICE DAILY
     Route: 045
  7. FISH OIL [Concomitant]
     Route: 065
  8. ACETYLSALICYLIC ACID [Concomitant]
     Route: 065
  9. CLONAZEPAM [Concomitant]
     Route: 065
  10. TRAMADOL [Concomitant]
     Route: 065
  11. PROCHLORPERAZINE [Concomitant]
     Route: 065
  12. BUDESONIDE [Concomitant]
     Dosage: 0.5 M/2ML NEBULIZED
     Route: 055
  13. ATORVASTATIN [Concomitant]
     Route: 065

REACTIONS (5)
  - Toxicity to various agents [Recovered/Resolved]
  - Methaemoglobinaemia [Recovered/Resolved]
  - Yellow skin [Recovered/Resolved]
  - Haemolytic anaemia [Recovered/Resolved]
  - Renal failure acute [Recovered/Resolved]
